FAERS Safety Report 11309921 (Version 2)
Quarter: 2016Q1

REPORT INFORMATION
  Report Type: Spontaneous
  Country: US (occurrence: US)
  Receive Date: 20150724
  Receipt Date: 20160311
  Transmission Date: 20160525
  Serious: No
  Sender: FDA-Public Use
  Company Number: US-LUNDBECK-DKLU1112550

PATIENT
  Age: 64 Year
  Sex: Female

DRUGS (4)
  1. NORTHERA [Suspect]
     Active Substance: DROXIDOPA
     Dosage: DAYS 5-6
     Route: 048
  2. NORTHERA [Suspect]
     Active Substance: DROXIDOPA
     Indication: ORTHOSTATIC HYPOTENSION
     Dosage: DAYS 1-2
     Route: 048
     Dates: start: 201504
  3. NORTHERA [Suspect]
     Active Substance: DROXIDOPA
     Dosage: DAYS 3-4
     Route: 048
  4. NORTHERA [Suspect]
     Active Substance: DROXIDOPA
     Dosage: DAYS 7-14
     Route: 048
     Dates: end: 20150510

REACTIONS (1)
  - Drug ineffective [Unknown]

NARRATIVE: CASE EVENT DATE: 201504
